FAERS Safety Report 10180764 (Version 1)
Quarter: 2014Q2

REPORT INFORMATION
  Report Type: Spontaneous
  Country: US (occurrence: US)
  Receive Date: 20140519
  Receipt Date: 20140519
  Transmission Date: 20141212
  Serious: No
  Sender: FDA-Public Use
  Company Number: US-AMGEN INC.-USASP2014014313

PATIENT
  Age: 61 Year
  Sex: Female

DRUGS (5)
  1. PROLIA [Suspect]
     Indication: OSTEOPOROSIS POSTMENOPAUSAL
     Dosage: UNK
     Route: 065
     Dates: start: 2013
  2. CALCIUM [Concomitant]
     Dosage: 1200 MG, UNK
  3. VITAMIN D3 AGEPHA [Concomitant]
     Dosage: 1000 IU, UNK
  4. FISH OIL [Concomitant]
  5. VITAMIN C                          /00008001/ [Concomitant]

REACTIONS (5)
  - Groin pain [Not Recovered/Not Resolved]
  - Back pain [Not Recovered/Not Resolved]
  - Arthralgia [Not Recovered/Not Resolved]
  - Musculoskeletal pain [Not Recovered/Not Resolved]
  - Pain in extremity [Not Recovered/Not Resolved]
